FAERS Safety Report 19484197 (Version 1)
Quarter: 2021Q3

REPORT INFORMATION
  Report Type: Spontaneous
  Country: MY (occurrence: MY)
  Receive Date: 20210701
  Receipt Date: 20210701
  Transmission Date: 20211014
  Serious: Yes (Death, Other)
  Sender: FDA-Public Use
  Company Number: MY-SA-2021SA215657

PATIENT
  Age: 82 Year
  Sex: Male

DRUGS (1)
  1. CLEXANE [Suspect]
     Active Substance: ENOXAPARIN SODIUM
     Indication: DEEP VEIN THROMBOSIS
     Dosage: CLEXANE 4000/0.4ML ANTI?XA IU
     Route: 058

REACTIONS (2)
  - Upper gastrointestinal haemorrhage [Fatal]
  - Blood pressure decreased [Fatal]
